FAERS Safety Report 14497631 (Version 3)
Quarter: 2018Q2

REPORT INFORMATION
  Report Type: Other
  Country: US (occurrence: US)
  Receive Date: 20180207
  Receipt Date: 20180621
  Transmission Date: 20180711
  Serious: Yes (Death, Hospitalization)
  Sender: FDA-Public Use
  Company Number: US-ACORDA-ACO_146357_2018

PATIENT
  Age: 74 Year
  Sex: Female

DRUGS (1)
  1. AMPYRA [Suspect]
     Active Substance: DALFAMPRIDINE
     Indication: MULTIPLE SCLEROSIS
     Dosage: 10 MG, BID
     Route: 048
     Dates: start: 20170826

REACTIONS (12)
  - Shock [Unknown]
  - Back pain [Unknown]
  - Vomiting [Unknown]
  - Escherichia urinary tract infection [Unknown]
  - Urinary tract infection [Fatal]
  - Chills [Unknown]
  - Hyperkalaemia [Unknown]
  - Sepsis [Fatal]
  - Urinary incontinence [Unknown]
  - Nausea [Unknown]
  - Muscle spasms [Unknown]
  - Acidosis [Unknown]

NARRATIVE: CASE EVENT DATE: 20180120
